FAERS Safety Report 8389258 (Version 2)
Quarter: 2013Q1

REPORT INFORMATION
  Report Type: Spontaneous
  Country: US (occurrence: US)
  Receive Date: 20120203
  Receipt Date: 20130228
  Transmission Date: 20140127
  Serious: Yes (Hospitalization)
  Sender: FDA-Public Use
  Company Number: US-BAYER-2012-010502

PATIENT
  Age: 26 Year
  Sex: Female
  Weight: 124.72 kg

DRUGS (2)
  1. YAZ [Suspect]
     Indication: CONTRACEPTION
     Dosage: UNK
     Dates: start: 200709, end: 200904
  2. YASMIN [Suspect]
     Indication: CONTRACEPTION
     Dosage: UNK
     Dates: start: 200612, end: 200709

REACTIONS (6)
  - Cholelithiasis [None]
  - Cholecystitis chronic [None]
  - Emotional distress [None]
  - Mental disorder [None]
  - Injury [None]
  - Pain [None]
